FAERS Safety Report 24157321 (Version 5)
Quarter: 2025Q1

REPORT INFORMATION
  Report Type: Spontaneous
  Country: US (occurrence: US)
  Receive Date: 20240731
  Receipt Date: 20250115
  Transmission Date: 20250409
  Serious: Yes (Other)
  Sender: SANOFI AVENTIS
  Company Number: US-SA-SAC20240725001175

PATIENT
  Age: 13 Year
  Sex: Male
  Weight: 59.09 kg

DRUGS (3)
  1. DUPIXENT [Suspect]
     Active Substance: DUPILUMAB
     Indication: Eczema
     Route: 058
     Dates: start: 20240522, end: 20240522
  2. DUPIXENT [Suspect]
     Active Substance: DUPILUMAB
     Indication: Dermatitis atopic
     Dosage: 1 DF, QM
     Route: 058
     Dates: start: 20240629, end: 20240629
  3. DUPIXENT [Suspect]
     Active Substance: DUPILUMAB
     Dosage: 300 MG, QOW
     Route: 058
     Dates: start: 20240713

REACTIONS (19)
  - Growth retardation [Unknown]
  - Injection site swelling [Unknown]
  - Injection site pain [Unknown]
  - Product preparation error [Unknown]
  - Dry skin [Unknown]
  - Skin texture abnormal [Unknown]
  - Skin irritation [Unknown]
  - Skin haemorrhage [Unknown]
  - Dermatitis contact [Unknown]
  - Rash erythematous [Not Recovered/Not Resolved]
  - Condition aggravated [Unknown]
  - Arthropathy [Unknown]
  - Erythema [Unknown]
  - Pruritus [Unknown]
  - Rash [Not Recovered/Not Resolved]
  - Hypersensitivity [Not Recovered/Not Resolved]
  - Therapeutic response decreased [Unknown]
  - Inappropriate schedule of product administration [Unknown]
  - Product dose omission in error [Unknown]

NARRATIVE: CASE EVENT DATE: 20240101
